FAERS Safety Report 17041455 (Version 1)
Quarter: 2019Q4

REPORT INFORMATION
  Report Type: Spontaneous
  Country: US (occurrence: US)
  Receive Date: 20191118
  Receipt Date: 20191118
  Transmission Date: 20200122
  Serious: No
  Sender: FDA-Public Use
  Company Number: US-BIOGEN-2019BI00779202

PATIENT
  Sex: Female

DRUGS (1)
  1. TECFIDERA [Suspect]
     Active Substance: DIMETHYL FUMARATE
     Indication: MULTIPLE SCLEROSIS
     Route: 065

REACTIONS (6)
  - Mental impairment [Unknown]
  - Kidney infection [Unknown]
  - Mood swings [Not Recovered/Not Resolved]
  - Hangover [Unknown]
  - Peripheral swelling [Unknown]
  - Arthralgia [Unknown]
